FAERS Safety Report 5182339-8 (Version None)
Quarter: 2006Q4

REPORT INFORMATION
  Report Type: 
  Country: None (occurrence: None)
  Receive Date: 20061220
  Receipt Date: 20060728
  Transmission Date: 20070319
  Serious: No
  Sender: FDA-Public Use
  Company Number: US-GLAXOSMITHKLINE-A0613916A

PATIENT
  Age: 58 Year
  Sex: Male

DRUGS (1)
  1. COMMIT [Suspect]
     Dates: start: 20060725, end: 20060725

REACTIONS (3)
  - MALAISE [None]
  - NAUSEA [None]
  - STOMACH DISCOMFORT [None]
